FAERS Safety Report 8434166-3 (Version None)
Quarter: 2012Q2

REPORT INFORMATION
  Report Type: 
  Country: None (occurrence: None)
  Receive Date: 20120613
  Receipt Date: 20120611
  Transmission Date: 20120825
  Serious: Yes (Death, Hospitalization)
  Sender: FDA-Public Use
  Company Number: US-ACTELION-A-NJ2012-60789

PATIENT

DRUGS (2)
  1. CALCIUM CHANNEL BLOCKERS [Concomitant]
  2. TRACLEER [Suspect]
     Indication: PULMONARY ARTERIAL HYPERTENSION
     Dosage: UNK
     Route: 048
     Dates: start: 20020320

REACTIONS (5)
  - CARDIAC PACEMAKER INSERTION [None]
  - CARDIAC ABLATION [None]
  - ATRIAL FIBRILLATION [None]
  - CARDIAC FAILURE [None]
  - RIGHT VENTRICULAR FAILURE [None]
